FAERS Safety Report 5505275-3 (Version None)
Quarter: 2007Q4

REPORT INFORMATION
  Report Type: 
  Country: None (occurrence: None)
  Receive Date: 20071102
  Receipt Date: 20071031
  Transmission Date: 20080405
  Serious: Yes (Other)
  Sender: FDA-Public Use
  Company Number: CA-KINGPHARMUSA00001-K200701400

PATIENT

DRUGS (3)
  1. EPINEPHRINE [Suspect]
     Dosage: 0.5 CM3 OF 1:1,000, SINGLE
     Route: 058
     Dates: start: 20050721, end: 20050721
  2. EPINEPHRINE [Suspect]
     Dosage: 0.5 CM3 OF 1:10,000, SINGLE
     Route: 058
     Dates: start: 20050721, end: 20050721
  3. EPINEPHRINE [Suspect]
     Dosage: 0.5 CM3 OF 1:100,000, SINGLE
     Route: 058
     Dates: start: 20050721, end: 20050721

REACTIONS (6)
  - INJECTION SITE ANAESTHESIA [None]
  - INJECTION SITE COLDNESS [None]
  - INJECTION SITE PALLOR [None]
  - INTENTIONAL DRUG MISUSE [None]
  - NERVE INJURY [None]
  - PAIN [None]
